FAERS Safety Report 15890917 (Version 3)
Quarter: 2019Q3

REPORT INFORMATION
  Report Type: Spontaneous
  Country: US (occurrence: US)
  Receive Date: 20190130
  Receipt Date: 20190701
  Transmission Date: 20191004
  Serious: Yes (Other)
  Sender: FDA-Public Use
  Company Number: US-PFIZER INC-2019044591

PATIENT
  Age: 53 Year
  Sex: Female

DRUGS (2)
  1. LYRICA [Suspect]
     Active Substance: PREGABALIN
     Indication: CANCER PAIN
     Dosage: 50 MG, 3X/DAY
     Route: 048
  2. LYRICA [Suspect]
     Active Substance: PREGABALIN
     Indication: STOMA SITE PAIN
     Dosage: 1 DF, 2X/DAY (1 BEFORE DINNER AND 1 IN THE EVENING)

REACTIONS (4)
  - Blindness [Unknown]
  - Neoplasm recurrence [Unknown]
  - Product use in unapproved indication [Unknown]
  - Off label use [Unknown]
